FAERS Safety Report 10081642 (Version 3)
Quarter: 2014Q2

REPORT INFORMATION
  Report Type: Spontaneous
  Country: JP (occurrence: JP)
  Receive Date: 20140416
  Receipt Date: 20140613
  Transmission Date: 20141212
  Serious: Yes (Hospitalization, Other)
  Sender: FDA-Public Use
  Company Number: JP-ELI_LILLY_AND_COMPANY-JP201404003062

PATIENT
  Age: 24 Year
  Sex: Female

DRUGS (8)
  1. CYMBALTA [Suspect]
     Indication: MAJOR DEPRESSION
     Dosage: 40 MG, QD
     Route: 048
     Dates: start: 201403, end: 20140331
  2. CYMBALTA [Suspect]
     Dosage: 200 MG, SINGLE
     Route: 048
     Dates: start: 20140401, end: 20140401
  3. SOLANAX [Concomitant]
     Indication: DEPRESSION
     Dosage: 0.8 MG, TID
     Route: 048
  4. ETIZOLAM [Concomitant]
     Indication: DEPRESSION
     Dosage: 1 MG, TID
     Route: 048
  5. ROHYPNOL [Concomitant]
     Indication: DEPRESSION
     Dosage: 2 MG, QD
     Route: 048
  6. AMOBAN [Concomitant]
     Indication: DEPRESSION
     Dosage: 15 MG, QD
     Route: 048
  7. JZOLOFT [Concomitant]
     Indication: DEPRESSION
     Dosage: 50 MG, QD
     Route: 048
  8. HALCION [Concomitant]
     Indication: DEPRESSION
     Dosage: 0.5 MG, QD
     Route: 048

REACTIONS (5)
  - Shock haemorrhagic [Recovered/Resolved]
  - Toxicity to various agents [Unknown]
  - Loss of consciousness [Recovered/Resolved]
  - Suicide attempt [Recovered/Resolved]
  - Intentional overdose [Recovered/Resolved]
